FAERS Safety Report 10958714 (Version 4)
Quarter: 2015Q3

REPORT INFORMATION
  Report Type: Spontaneous
  Country: US (occurrence: US)
  Receive Date: 20150326
  Receipt Date: 20150714
  Transmission Date: 20151125
  Serious: Yes (Hospitalization)
  Sender: FDA-Public Use
  Company Number: US-BAYER-2015-065730

PATIENT
  Age: 24 Year
  Sex: Female
  Weight: 54.42 kg

DRUGS (9)
  1. ZOLOFT [Concomitant]
     Active Substance: SERTRALINE HYDROCHLORIDE
     Indication: ANXIETY
  2. LEXAPRO [Concomitant]
     Active Substance: ESCITALOPRAM OXALATE
     Dosage: UNK
  3. AZITHROMYCIN [Concomitant]
     Active Substance: AZITHROMYCIN ANHYDROUS
     Route: 048
  4. PROMETHAZINE - CODEINE [CODEINE PHOSPHATE,PROMETHAZINE HYDROCHLORI [Concomitant]
     Route: 048
  5. ZOLOFT [Concomitant]
     Active Substance: SERTRALINE HYDROCHLORIDE
     Indication: DEPRESSION
     Dosage: UNK
  6. CITALOPRAM [Concomitant]
     Active Substance: CITALOPRAM HYDROBROMIDE
     Route: 048
  7. CELEXA [Concomitant]
     Active Substance: CITALOPRAM HYDROBROMIDE
     Indication: DEPRESSION
     Dosage: UNK
  8. MIRENA [Suspect]
     Active Substance: LEVONORGESTREL
     Indication: MENORRHAGIA
  9. MIRENA [Suspect]
     Active Substance: LEVONORGESTREL
     Indication: CONTRACEPTION
     Dosage: 20 MCG/24HR, CONT
     Route: 015
     Dates: start: 20111028, end: 20130321

REACTIONS (12)
  - Uterine perforation [None]
  - Anhedonia [None]
  - Drug ineffective [None]
  - Emotional distress [None]
  - Depression [Not Recovered/Not Resolved]
  - Fatigue [None]
  - Gastrointestinal injury [None]
  - Anxiety [Not Recovered/Not Resolved]
  - Menorrhagia [None]
  - Pain [None]
  - Device issue [None]
  - Injury [None]

NARRATIVE: CASE EVENT DATE: 20121221
